FAERS Safety Report 4841703-4 (Version None)
Quarter: 2005Q4

REPORT INFORMATION
  Report Type: 
  Country: None (occurrence: None)
  Receive Date: 20051027
  Receipt Date: 20041101
  Transmission Date: 20060501
  Serious: Yes (Other)
  Sender: FDA-Public Use
  Company Number: HQWYE219103NOV04

PATIENT
  Age: 66 Year
  Sex: Female
  Weight: 74.91 kg

DRUGS (10)
  1. PREMARIN [Suspect]
     Indication: ARTIFICIAL MENOPAUSE
     Dosage: 0.625 DAILY, ORAL
     Route: 048
     Dates: start: 19720101, end: 20040701
  2. PEPCID [Concomitant]
  3. VITAMIN C (ASCORBIC ACID) [Concomitant]
  4. VITAMIN E [Concomitant]
  5. CALCIUM WITH VITAMIN D (CALCIUM PHOSPHATE/CALCIUM SODIUM LACTATE/ERGOC [Concomitant]
  6. MULTIVITAMINS (ASCORBIC ACID/ERGOCALCIFEROL/FOLIC ACID/NICOTINAMIDE/PA [Concomitant]
  7. NEXIUM [Concomitant]
  8. COUMADIN [Concomitant]
  9. PREDNISONE [Concomitant]
  10. LORATADINE [Concomitant]

REACTIONS (6)
  - BLOOD PRESSURE INCREASED [None]
  - FLUID RETENTION [None]
  - GASTRIC ULCER [None]
  - MYALGIA [None]
  - MYOCARDIAL INFARCTION [None]
  - THROMBOSIS [None]
